FAERS Safety Report 18217421 (Version 1)
Quarter: 2020Q3

REPORT INFORMATION
  Report Type: Spontaneous
  Country: FR (occurrence: FR)
  Receive Date: 20200901
  Receipt Date: 20200901
  Transmission Date: 20201103
  Serious: Yes (Hospitalization, Other)
  Sender: FDA-Public Use
  Company Number: FR-GLAXOSMITHKLINE-FR2020170911

PATIENT
  Age: 79 Year
  Sex: Male
  Weight: 78 kg

DRUGS (11)
  1. RITUXIMAB. [Interacting]
     Active Substance: RITUXIMAB
     Dosage: 1 G 15 DAYS
     Route: 042
     Dates: start: 20191120, end: 20191205
  2. ATORVASTATINE [Concomitant]
     Active Substance: ATORVASTATIN
     Indication: DYSLIPIDAEMIA
     Dosage: 10 MG, QD
     Route: 048
  3. LANSOPRAZOLE. [Concomitant]
     Active Substance: LANSOPRAZOLE
     Indication: PROPHYLAXIS
     Dosage: 15 MG, QD
     Route: 048
     Dates: start: 2018
  4. LEVOTHYROX [Concomitant]
     Active Substance: LEVOTHYROXINE
     Indication: HYPOTHYROIDISM
     Dosage: 137.5 ?G, QD
     Route: 048
     Dates: start: 2018
  5. BISOPROLOL FUMARATE. [Concomitant]
     Active Substance: BISOPROLOL FUMARATE
     Indication: HYPERTENSION
     Dosage: 5 MG, QD
     Route: 048
     Dates: end: 20200720
  6. PREGABALINE [Concomitant]
     Active Substance: PREGABALIN
     Indication: NEUROPATHY PERIPHERAL
     Dosage: 450 MG, QD
     Route: 048
  7. CLOPIDOGREL HYDROCHLORIDE [Concomitant]
     Active Substance: CLOPIDOGREL HYDROCHLORIDE
     Indication: CARDIOVASCULAR EVENT PROPHYLAXIS
     Dosage: 75 MG, QD
     Route: 048
     Dates: start: 201711
  8. BACTRIM [Concomitant]
     Active Substance: SULFAMETHOXAZOLE\TRIMETHOPRIM
     Indication: OPPORTUNISTIC INFECTION PROPHYLAXIS
     Dosage: 3 DF, WE
     Route: 048
  9. BENLYSTA [Suspect]
     Active Substance: BELIMUMAB
     Indication: CRYOGLOBULINAEMIA
     Dosage: 10 MG, UNK
     Route: 042
     Dates: start: 20200717, end: 20200717
  10. RITUXIMAB. [Interacting]
     Active Substance: RITUXIMAB
     Indication: CRYOGLOBULINAEMIA
     Dosage: 375 MG/M2 SINGLE
     Route: 042
     Dates: start: 20200717, end: 20200717
  11. SPIRONOLACTONE. [Concomitant]
     Active Substance: SPIRONOLACTONE
     Indication: HYPERTENSION
     Dosage: 12.5 MG, QD
     Route: 048

REACTIONS (5)
  - Sepsis [Recovered/Resolved]
  - Escherichia bacteraemia [Recovered/Resolved]
  - Drug interaction [Recovered/Resolved]
  - Erysipelas [Recovered/Resolved]
  - Asymptomatic COVID-19 [Recovered/Resolved]

NARRATIVE: CASE EVENT DATE: 20200718
